FAERS Safety Report 4985634-8 (Version None)
Quarter: 2006Q2

REPORT INFORMATION
  Report Type: 
  Country: None (occurrence: None)
  Receive Date: 20060428
  Receipt Date: 20060419
  Transmission Date: 20061013
  Serious: Yes (Hospitalization, Other)
  Sender: FDA-Public Use
  Company Number: PHEH2006US05167

PATIENT
  Age: 41 Year
  Sex: Male

DRUGS (8)
  1. DESFERAL [Suspect]
     Indication: BLOOD IRON INCREASED
     Dosage: 2 GMS OVER 12 HOURS DAILY
     Route: 058
     Dates: start: 20050606
  2. DESFERAL [Suspect]
     Dosage: UNK, UNK
     Dates: start: 20010101, end: 20050501
  3. IMURAN [Concomitant]
  4. FOLIC ACID [Concomitant]
     Dosage: 1 MG, BID
  5. SODIUM BICARBONATE [Concomitant]
     Dosage: UNK, UNK
  6. CALCIUM CARBONATE [Concomitant]
     Dosage: 350 MG, TID
  7. DILAUDID [Concomitant]
     Dosage: 4 MG, PRN
  8. PROCARDIA XL [Concomitant]
     Dosage: 90 MG, QD

REACTIONS (11)
  - BIOPSY LIVER ABNORMAL [None]
  - BLOOD CREATININE INCREASED [None]
  - DYSPNOEA EXERTIONAL [None]
  - HEPATIC FIBROSIS [None]
  - HEPATIC FUNCTION ABNORMAL [None]
  - INFLAMMATION [None]
  - KIDNEY TRANSPLANT REJECTION [None]
  - SERUM FERRITIN INCREASED [None]
  - SICKLE CELL ANAEMIA WITH CRISIS [None]
  - STAPHYLOCOCCAL BACTERAEMIA [None]
  - TREATMENT NONCOMPLIANCE [None]
